FAERS Safety Report 26120573 (Version 2)
Quarter: 2025Q4

REPORT INFORMATION
  Report Type: Report from Study
  Country: KR (occurrence: KR)
  Receive Date: 20251204
  Receipt Date: 20251214
  Transmission Date: 20260117
  Serious: Yes (Death)
  Sender: ABBVIE
  Company Number: KR-PFIZER INC-PV202500140753

PATIENT
  Age: 85 Year
  Sex: Male
  Weight: 60 kg

DRUGS (6)
  1. AVIBACTAM SODIUM\CEFTAZIDIME [Suspect]
     Active Substance: AVIBACTAM SODIUM\CEFTAZIDIME
     Indication: Urinary tract infection
     Dosage: 1.25 G, TID, INJECTION
     Route: 042
     Dates: start: 20251105, end: 20251113
  2. MASI [Concomitant]
     Indication: Prophylaxis
     Dosage: (20ML/2G)
     Route: 042
     Dates: start: 20251105, end: 20251105
  3. MASI [Concomitant]
     Indication: Prophylaxis
     Dosage: (20ML/2G)
     Route: 042
     Dates: start: 20251105, end: 20251105
  4. TAZOPERAN [Concomitant]
     Indication: Infection
     Dosage: 4.5 G
     Route: 042
     Dates: start: 20251030, end: 20251105
  5. GASTER [Concomitant]
     Active Substance: FAMOTIDINE
     Indication: Prophylaxis
     Dosage: 20 MG
     Route: 042
     Dates: start: 20251031, end: 20251113
  6. CROMOLYN SODIUM [Concomitant]
     Active Substance: CROMOLYN SODIUM
     Indication: Prophylaxis
     Dosage: 20 MG???GASTER
     Route: 042
     Dates: start: 20251031, end: 20251113

REACTIONS (1)
  - Death [Fatal]

NARRATIVE: CASE EVENT DATE: 20251101
